FAERS Safety Report 6101001-8 (Version None)
Quarter: 2009Q1

REPORT INFORMATION
  Report Type: 
  Country: None (occurrence: None)
  Receive Date: 20090227
  Receipt Date: 20090216
  Transmission Date: 20090719
  Serious: Yes (Death)
  Sender: FDA-Public Use
  Company Number: GXKR2009US02012

PATIENT
  Age: 61 Year
  Sex: Male

DRUGS (8)
  1. MYCOPHENOLATE MOFETIL [Suspect]
     Indication: IMMUNOSUPPRESSION
  2. PREDNISONE [Suspect]
     Indication: IMMUNOSUPPRESSION
  3. TACROLIMUS [Suspect]
     Indication: IMMUNOSUPPRESSION
  4. THYMOGLOBULIN [Suspect]
     Indication: IMMUNOSUPPRESSION
  5. CORTICOSTEROID NOS (CORTICOSTEROID NOS) [Suspect]
     Indication: ACUTE RESPIRATORY DISTRESS SYNDROME
  6. CORTICOSTEROID NOS (CORTICOSTEROID NOS) [Suspect]
     Indication: IMMUNOSUPPRESSION
  7. ACYCLOVIR [Concomitant]
  8. SULFAMETHOXAZOLE W/TRIMETHOPRIM (SULFAMETHOXAZOLE, TRIMETHOPRIM) [Concomitant]

REACTIONS (19)
  - ACUTE RESPIRATORY DISTRESS SYNDROME [None]
  - COMPLICATIONS OF TRANSPLANTED KIDNEY [None]
  - HAEMODIALYSIS [None]
  - HAEMOPTYSIS [None]
  - HAEMORRHAGE [None]
  - HYPOTENSION [None]
  - INFECTION IN AN IMMUNOCOMPROMISED HOST [None]
  - LEUKOCYTOSIS [None]
  - PNEUMONIA CYTOMEGALOVIRAL [None]
  - POSTOPERATIVE WOUND COMPLICATION [None]
  - PULMONARY ALVEOLAR HAEMORRHAGE [None]
  - PULMONARY OEDEMA [None]
  - RENAL IMPAIRMENT [None]
  - RIGHT ATRIAL DILATATION [None]
  - RIGHT VENTRICULAR DYSFUNCTION [None]
  - SEROMA [None]
  - STRONGYLOIDIASIS [None]
  - TRICUSPID VALVE INCOMPETENCE [None]
  - WOUND DEHISCENCE [None]
